FAERS Safety Report 9301073 (Version 2)
Quarter: 2013Q2

REPORT INFORMATION
  Report Type: Report from Study
  Country: US (occurrence: US)
  Receive Date: 20130521
  Receipt Date: 20130530
  Transmission Date: 20140414
  Serious: Yes (Hospitalization)
  Sender: FDA-Public Use
  Company Number: US-ABBOTT-13P-163-1043644-00

PATIENT
  Age: 62 Year
  Sex: Male

DRUGS (11)
  1. HUMIRA [Suspect]
     Indication: RHEUMATOID ARTHRITIS
     Route: 058
     Dates: start: 20130108
  2. AMOXICILLIN [Suspect]
     Indication: PRODUCT USED FOR UNKNOWN INDICATION
  3. METHOTREXATE [Concomitant]
     Indication: RHEUMATOID ARTHRITIS
  4. LIPITOR [Concomitant]
     Indication: BLOOD CHOLESTEROL INCREASED
     Dosage: AT DINNER
  5. AMLODIPINE [Concomitant]
     Indication: HYPERTENSION
     Dosage: QHS
  6. DIOVAN [Concomitant]
     Indication: HYPERTENSION
     Dosage: QHS
  7. PRILOSEC [Concomitant]
     Indication: ULCER
     Dosage: QAM
  8. IRON [Concomitant]
     Indication: ANAEMIA
  9. FOLIC ACID [Concomitant]
     Indication: PRODUCT USED FOR UNKNOWN INDICATION
  10. CELEBREX [Concomitant]
     Indication: PRODUCT USED FOR UNKNOWN INDICATION
  11. MULTIVITAMINS [Concomitant]
     Indication: PRODUCT USED FOR UNKNOWN INDICATION

REACTIONS (3)
  - Middle ear effusion [Recovered/Resolved]
  - Injection site erythema [Unknown]
  - Dermatitis allergic [Unknown]
